FAERS Safety Report 5353834-3 (Version None)
Quarter: 2007Q2

REPORT INFORMATION
  Report Type: 
  Country: None (occurrence: None)
  Receive Date: 20070521
  Receipt Date: 20070201
  Transmission Date: 20071010
  Serious: No
  Sender: FDA-Public Use
  Company Number: WAES 0702USA00549

PATIENT
  Age: 49 Year
  Sex: Male

DRUGS (3)
  1. JANUVIA [Suspect]
     Indication: BLOOD GLUCOSE
     Dosage: 100 MG DAILY PO
     Route: 048
     Dates: start: 20070112
  2. PRECOSE [Concomitant]
  3. METFORMIN HCL [Concomitant]

REACTIONS (3)
  - ASTHENIA [None]
  - MUSCLE SPASMS [None]
  - PAIN [None]
